FAERS Safety Report 9719317 (Version 1)
Quarter: 2013Q4

REPORT INFORMATION
  Report Type: Spontaneous
  Country: US (occurrence: US)
  Receive Date: 20131127
  Receipt Date: 20131127
  Transmission Date: 20140711
  Serious: Yes (Death)
  Sender: FDA-Public Use
  Company Number: US-PFIZER INC-2013339650

PATIENT
  Age: 92 Year
  Sex: Female

DRUGS (1)
  1. CELEBREX [Suspect]
     Dosage: MORE THAN 200MG A DAY

REACTIONS (1)
  - Heart valve stenosis [Fatal]
